FAERS Safety Report 22386710 (Version 1)
Quarter: 2023Q2

REPORT INFORMATION
  Report Type: Spontaneous
  Country: US (occurrence: US)
  Receive Date: 20230531
  Receipt Date: 20230531
  Transmission Date: 20230722
  Serious: Yes (Other)
  Sender: FDA-Public Use
  Company Number: US-STRIDES ARCOLAB LIMITED-2023SP006314

PATIENT
  Age: 66 Year
  Sex: Female

DRUGS (13)
  1. ETOPOSIDE [Suspect]
     Active Substance: ETOPOSIDE
     Indication: B-cell lymphoma stage III
     Dosage: UNK
     Route: 065
  2. PREDNISOLONE [Suspect]
     Active Substance: PREDNISOLONE
     Indication: B-cell lymphoma stage III
     Dosage: UNK
     Route: 065
  3. DOXORUBICIN [Suspect]
     Active Substance: DOXORUBICIN
     Indication: B-cell lymphoma stage III
     Dosage: UNK
     Route: 065
  4. CISPLATIN [Suspect]
     Active Substance: CISPLATIN
     Indication: B-cell lymphoma stage III
     Dosage: UNK
     Route: 065
  5. CISPLATIN [Suspect]
     Active Substance: CISPLATIN
     Indication: Salvage therapy
  6. DEXAMETHASONE [Suspect]
     Active Substance: DEXAMETHASONE
     Indication: B-cell lymphoma stage III
     Dosage: UNK
     Route: 065
  7. DEXAMETHASONE [Suspect]
     Active Substance: DEXAMETHASONE
     Indication: Salvage therapy
  8. RITUXIMAB [Suspect]
     Active Substance: RITUXIMAB
     Indication: B-cell lymphoma stage III
     Dosage: UNK
     Route: 065
  9. RITUXIMAB [Suspect]
     Active Substance: RITUXIMAB
     Indication: Salvage therapy
     Dosage: UNK, (SALVAGE RITUXIMAB)
     Route: 065
  10. VINCRISTINE [Suspect]
     Active Substance: VINCRISTINE
     Indication: B-cell lymphoma stage III
     Dosage: UNK
     Route: 065
  11. CYCLOPHOSPHAMIDE [Suspect]
     Active Substance: CYCLOPHOSPHAMIDE
     Indication: B-cell lymphoma stage III
     Dosage: UNK
     Route: 065
  12. CYTARABINE [Suspect]
     Active Substance: CYTARABINE
     Indication: B-cell lymphoma stage III
     Dosage: UNK
     Route: 065
  13. CYTARABINE [Suspect]
     Active Substance: CYTARABINE
     Indication: Salvage therapy

REACTIONS (3)
  - Disease progression [Unknown]
  - Drug ineffective [Unknown]
  - Off label use [Unknown]
